FAERS Safety Report 25744802 (Version 1)
Quarter: 2025Q3

REPORT INFORMATION
  Report Type: Spontaneous
  Country: CH (occurrence: CH)
  Receive Date: 20250901
  Receipt Date: 20250901
  Transmission Date: 20251020
  Serious: Yes (Other)
  Sender: EXELA PHARMA SCIENCES
  Company Number: CH-EXELAPHARMA-2025EXLA00171

PATIENT
  Age: 9 Year
  Sex: Male

DRUGS (3)
  1. TRANEXAMIC ACID [Suspect]
     Active Substance: TRANEXAMIC ACID
     Indication: Shock haemorrhagic
  2. Fluid bolus of Ringer^s [Concomitant]
     Indication: Shock haemorrhagic
     Route: 040
  3. Packed Red blood cells (PRBC) [Concomitant]
     Indication: Shock haemorrhagic

REACTIONS (2)
  - Drug ineffective for unapproved indication [Unknown]
  - Disease progression [Recovered/Resolved]
